FAERS Safety Report 13745630 (Version 1)
Quarter: 2017Q3

REPORT INFORMATION
  Report Type: Spontaneous
  Country: US (occurrence: US)
  Receive Date: 20170712
  Receipt Date: 20170712
  Transmission Date: 20171127
  Serious: No
  Sender: FDA-Public Use
  Company Number: US-BAYER-2017-130106

PATIENT
  Age: 93 Year
  Sex: Male
  Weight: 84 kg

DRUGS (2)
  1. MIRALAX [Suspect]
     Active Substance: POLYETHYLENE GLYCOL 3350
     Indication: GASTROINTESTINAL DISORDER
     Dosage: 1 DF, QD
     Route: 048
  2. PETROLATUM/MINERAL OIL [Concomitant]
     Dosage: UNK

REACTIONS (5)
  - Drug prescribing error [Unknown]
  - Product use issue [Unknown]
  - Asthenia [Not Recovered/Not Resolved]
  - Drug ineffective [Unknown]
  - Product use issue [Not Recovered/Not Resolved]
